FAERS Safety Report 9792178 (Version 1)
Quarter: 2014Q1

REPORT INFORMATION
  Report Type: Spontaneous
  Country: US (occurrence: US)
  Receive Date: 20140102
  Receipt Date: 20140102
  Transmission Date: 20141002
  Serious: Yes (Hospitalization)
  Sender: FDA-Public Use
  Company Number: US-SA-2013SA135758

PATIENT
  Sex: Male

DRUGS (23)
  1. PLAVIX [Suspect]
     Route: 065
  2. PRILOSEC [Suspect]
     Route: 065
  3. EFFIENT [Concomitant]
  4. LANTUS [Concomitant]
  5. METFORMIN [Concomitant]
  6. GLIMEPIRIDE [Concomitant]
  7. NIASPAN [Concomitant]
  8. SIMVASTATIN [Concomitant]
  9. POTASSIUM IODIDE [Concomitant]
     Dosage: DOSE:1-4 DROPS WITH WATER
  10. LISINOPRIL [Concomitant]
  11. COQ [Concomitant]
  12. FISH OIL [Concomitant]
  13. ISOSORBIDE MONONITRATE [Concomitant]
  14. ASPIRIN [Concomitant]
  15. METOPROLOL TARTRATE [Concomitant]
  16. PANTOPRAZOLE [Concomitant]
  17. HYDROCHLOROTHIAZIDE [Concomitant]
  18. ARMOUR THYROID [Concomitant]
  19. DHEA [Concomitant]
  20. VITAMIN D [Concomitant]
  21. MULTIVITAMINS [Concomitant]
  22. VITAMIN B COMPLEX [Concomitant]
  23. BYETTA [Concomitant]

REACTIONS (1)
  - Arterial occlusive disease [Unknown]
